FAERS Safety Report 8541358-1 (Version None)
Quarter: 2012Q3

REPORT INFORMATION
  Report Type: 
  Country: None (occurrence: None)
  Receive Date: 20120726
  Receipt Date: 20120719
  Transmission Date: 20120928
  Serious: Yes (Other)
  Sender: FDA-Public Use
  Company Number: JP-PFIZER INC-2012168280

PATIENT
  Age: 3 Year
  Sex: Female

DRUGS (1)
  1. CORTRIL [Suspect]
     Route: 048

REACTIONS (1)
  - UTERINE HAEMORRHAGE [None]
